FAERS Safety Report 12816987 (Version 2)
Quarter: 2016Q4

REPORT INFORMATION
  Report Type: Spontaneous
  Country: US (occurrence: US)
  Receive Date: 20161006
  Receipt Date: 20161014
  Transmission Date: 20170207
  Serious: No
  Sender: FDA-Public Use
  Company Number: US-HORIZON-PEN-0455-2016

PATIENT
  Age: 64 Year
  Sex: Female

DRUGS (1)
  1. PENNSAID [Suspect]
     Active Substance: DICLOFENAC SODIUM
     Indication: MUSCULOSKELETAL PAIN
     Dosage: 2 PUMPS BID
     Route: 061
     Dates: start: 201608

REACTIONS (3)
  - Off label use [Unknown]
  - Product physical consistency issue [Unknown]
  - Dry skin [Unknown]

NARRATIVE: CASE EVENT DATE: 201608
